FAERS Safety Report 22347707 (Version 3)
Quarter: 2024Q4

REPORT INFORMATION
  Report Type: Report from Study
  Country: BR (occurrence: BR)
  Receive Date: 20230522
  Receipt Date: 20241112
  Transmission Date: 20250114
  Serious: Yes (Hospitalization, Other)
  Sender: CELLTRION
  Company Number: BR-CELLTRION INC.-2023BR010407

PATIENT

DRUGS (3)
  1. INFLIXIMAB-DYYB [Suspect]
     Active Substance: INFLIXIMAB-DYYB
     Indication: Crohn^s disease
     Dosage: 2 AMPOULES EVERY MONTH
     Route: 042
     Dates: start: 20220803
  2. INFLIXIMAB-DYYB [Suspect]
     Active Substance: INFLIXIMAB-DYYB
     Dosage: 2 AMPOULES EVERY MONTH (LAST INFUSION)
     Route: 042
     Dates: start: 20230906
  3. DESOGESTREL [Concomitant]
     Active Substance: DESOGESTREL
     Indication: Contraception
     Dosage: 1 CAPSULE DAY; 8 YEARS AGO
     Route: 048

REACTIONS (5)
  - Ill-defined disorder [Recovered/Resolved]
  - Infusion related hypersensitivity reaction [Recovered/Resolved]
  - Toxicity to various agents [Unknown]
  - Drug effect less than expected [Unknown]
  - Intentional product use issue [Unknown]

NARRATIVE: CASE EVENT DATE: 20230510
